FAERS Safety Report 5138214-8 (Version None)
Quarter: 2006Q4

REPORT INFORMATION
  Report Type: 
  Country: None (occurrence: None)
  Receive Date: 20061030
  Receipt Date: 20060726
  Transmission Date: 20070319
  Serious: No
  Sender: FDA-Public Use
  Company Number: US-GLAXOSMITHKLINE-A0613688A

PATIENT
  Age: 79 Year
  Sex: Female

DRUGS (4)
  1. ADVAIR HFA [Suspect]
     Indication: ASTHMA
     Dosage: 1PUFF PER DAY
     Route: 055
     Dates: end: 20060719
  2. DYAZIDE [Concomitant]
  3. VITAMINS [Concomitant]
  4. FOSAMAX [Concomitant]

REACTIONS (5)
  - DYSPNOEA [None]
  - HAIR GROWTH ABNORMAL [None]
  - MOUTH ULCERATION [None]
  - NAIL GROWTH ABNORMAL [None]
  - WEIGHT INCREASED [None]
